FAERS Safety Report 17261730 (Version 1)
Quarter: 2020Q1

REPORT INFORMATION
  Report Type: Report from Study
  Country: BR (occurrence: CO)
  Receive Date: 20200113
  Receipt Date: 20200113
  Transmission Date: 20200409
  Serious: Yes (Other)
  Sender: FDA-Public Use
  Company Number: CO-ASTELLAS-2017US021360

PATIENT
  Age: 47 Year
  Sex: Male

DRUGS (2)
  1. TACROLIMUS. [Suspect]
     Active Substance: TACROLIMUS
     Indication: RENAL TRANSPLANT
     Route: 048
     Dates: start: 20120811, end: 20160825
  2. TACROLIMUS. [Suspect]
     Active Substance: TACROLIMUS
     Indication: RENAL TRANSPLANT
     Route: 048
     Dates: start: 20120811, end: 20160825

REACTIONS (2)
  - Drug ineffective [Not Recovered/Not Resolved]
  - Transplant rejection [Not Recovered/Not Resolved]

NARRATIVE: CASE EVENT DATE: 20160825
